FAERS Safety Report 10994443 (Version 3)
Quarter: 2015Q2

REPORT INFORMATION
  Report Type: Spontaneous
  Country: US (occurrence: US)
  Receive Date: 20150407
  Receipt Date: 20150512
  Transmission Date: 20150821
  Serious: No
  Sender: FDA-Public Use
  Company Number: US-PFIZER INC-2015115623

PATIENT
  Age: 77 Year
  Sex: Male
  Weight: 95 kg

DRUGS (21)
  1. OMEPRAZOLE. [Concomitant]
     Active Substance: OMEPRAZOLE
     Dosage: 20 MG, 2X/DAY
     Dates: start: 20150313
  2. ALLOPURINOL. [Concomitant]
     Active Substance: ALLOPURINOL
     Dosage: 100 MG, UNK (ONE TAB EACH MORNING?1 WK THEN  TWO TAB EACH MORNING FOR 1 WK, THEN 3 TAB EACH MORNING)
     Dates: start: 20141117
  3. CLINDAMYCIN PHOSPHATE. [Concomitant]
     Active Substance: CLINDAMYCIN PHOSPHATE
     Dosage: 1 %, 2X/DAY
     Dates: start: 20140815
  4. LYRICA [Suspect]
     Active Substance: PREGABALIN
     Indication: FIBROMYALGIA
     Dosage: 150 MG, 2X/DAY
     Dates: start: 20141111
  5. LEXAPRO [Concomitant]
     Active Substance: ESCITALOPRAM OXALATE
     Dosage: UNK, 1X/DAY
     Dates: start: 20150403
  6. ZYRTEC GENERIC [Concomitant]
     Dosage: 10 MG, DAILY
     Dates: start: 20140721
  7. LASIX [Concomitant]
     Active Substance: FUROSEMIDE
     Dosage: 40 MG, 1X/DAY
     Dates: start: 20140721
  8. VIAGRA [Suspect]
     Active Substance: SILDENAFIL CITRATE
     Dosage: 100 UNK, AS NEEDED (1 TABLET 1 HR PRIOR TO INTERCOURSE)
     Dates: start: 20130130
  9. NORCO [Concomitant]
     Active Substance: ACETAMINOPHEN\HYDROCODONE BITARTRATE
     Dosage: UNK, 4X/DAY (HYDROCODONE BITARTRATE 10 MG, PARACETAMOL 325 ,MG)
     Dates: start: 20150320
  10. LISINOPRIL. [Concomitant]
     Active Substance: LISINOPRIL
     Dosage: 10 MG, DAILY
     Dates: start: 20150116
  11. FISH OIL [Concomitant]
     Active Substance: FISH OIL
     Dosage: 2 G, DAILY
     Dates: start: 20141029
  12. KETOCONAZOLE. [Concomitant]
     Active Substance: KETOCONAZOLE
     Dosage: 2 %, 2X/DAY
     Dates: start: 20140815
  13. VIAGRA [Suspect]
     Active Substance: SILDENAFIL CITRATE
     Indication: ERECTILE DYSFUNCTION
     Dosage: 100 MG, AS NEEDED
     Dates: start: 2009
  14. XANAX [Concomitant]
     Active Substance: ALPRAZOLAM
     Dosage: 0.5 MG, 2X/DAY
     Dates: start: 20150403
  15. CLOBETASOL PROPIONATE E [Concomitant]
     Dosage: 0.05 %, AS NEEDED (DAILY)
     Dates: start: 20140815
  16. IBUPROFEN. [Concomitant]
     Active Substance: IBUPROFEN
     Dosage: 800 MG, 3X/DAY
     Dates: start: 20140721
  17. BENTYL [Concomitant]
     Active Substance: DICYCLOMINE HYDROCHLORIDE
     Dosage: 10 MG, 4X/DAY
     Dates: start: 20150403
  18. CRESTOR [Concomitant]
     Active Substance: ROSUVASTATIN CALCIUM
     Dosage: 40 MG, DAILY
     Dates: start: 20141029
  19. FLONASE [Concomitant]
     Active Substance: FLUTICASONE PROPIONATE
     Dosage: 100 ?G, DAILY
     Dates: start: 20140922
  20. CIPRO [Concomitant]
     Active Substance: CIPROFLOXACIN HYDROCHLORIDE
     Dosage: 500 MG, 2X/DAY
     Dates: start: 20150402
  21. CLOTRIMAZOLE AND BETAMETHASONE DIPROPIONATE [Concomitant]
     Active Substance: BETAMETHASONE\BETAMETHASONE DIPROPIONATE\CLOTRIMAZOLE
     Dosage: UNK %, 2X/DAY (1-0.05)
     Dates: start: 20140815

REACTIONS (2)
  - Hearing impaired [Not Recovered/Not Resolved]
  - Condition aggravated [Unknown]
